FAERS Safety Report 5845563-4 (Version None)
Quarter: 2008Q3

REPORT INFORMATION
  Report Type: 
  Country: None (occurrence: None)
  Receive Date: 20080814
  Receipt Date: 20080811
  Transmission Date: 20090109
  Serious: Yes (Life-Threatening, Hospitalization)
  Sender: FDA-Public Use
  Company Number: FR-ASTRAZENECA-2008CG01203

PATIENT
  Age: 16 Year
  Sex: Female

DRUGS (4)
  1. DIPRIVAN [Suspect]
     Indication: ANAESTHESIA
     Route: 042
     Dates: start: 20080521, end: 20080521
  2. VANCOMYCIN HCL [Suspect]
     Route: 042
     Dates: start: 20080521, end: 20080521
  3. TRACRIUM [Suspect]
     Indication: ANAESTHESIA
     Route: 042
     Dates: start: 20080521, end: 20080521
  4. SUFENTA [Suspect]
     Indication: ANAESTHESIA
     Route: 042
     Dates: start: 20080521, end: 20080521

REACTIONS (4)
  - CIRCULATORY COLLAPSE [None]
  - ERYTHEMA [None]
  - SHOCK [None]
  - TACHYCARDIA [None]
